FAERS Safety Report 17183102 (Version 2)
Quarter: 2020Q1

REPORT INFORMATION
  Report Type: Spontaneous
  Country: ES (occurrence: ES)
  Receive Date: 20191220
  Receipt Date: 20200120
  Transmission Date: 20200409
  Serious: Yes (Hospitalization, Other)
  Sender: FDA-Public Use
  Company Number: ES-009507513-1912ESP007128

PATIENT
  Age: 61 Year
  Sex: Male

DRUGS (1)
  1. PEMBROLIZUMAB. [Suspect]
     Active Substance: PEMBROLIZUMAB
     Indication: METASTATIC MALIGNANT MELANOMA
     Dosage: 2 MG/KG/CYCLE, 5 CYCLES

REACTIONS (4)
  - Squamous cell carcinoma [Unknown]
  - Inflammatory bowel disease [Unknown]
  - Toxic epidermal necrolysis [Unknown]
  - Erythema multiforme [Unknown]
